FAERS Safety Report 25958787 (Version 2)
Quarter: 2025Q4

REPORT INFORMATION
  Report Type: Spontaneous
  Country: CN (occurrence: CN)
  Receive Date: 20251025
  Receipt Date: 20251116
  Transmission Date: 20260117
  Serious: Yes (Hospitalization)
  Sender: ABBVIE
  Company Number: CN-PFIZER INC-PV202500124783

PATIENT
  Age: 54 Year
  Sex: Male
  Weight: 45.8 kg

DRUGS (1)
  1. AVIBACTAM SODIUM\CEFTAZIDIME [Suspect]
     Active Substance: AVIBACTAM SODIUM\CEFTAZIDIME
     Indication: Biliary tract infection
     Dosage: 2.5 G, 2X/DAY
     Route: 041
     Dates: start: 20250526, end: 20250531

REACTIONS (1)
  - Blood bilirubin increased [Recovering/Resolving]

NARRATIVE: CASE EVENT DATE: 20250530
